FAERS Safety Report 4824709-0 (Version None)
Quarter: 2005Q4

REPORT INFORMATION
  Report Type: 
  Country: None (occurrence: None)
  Receive Date: 20051108
  Receipt Date: 20051027
  Transmission Date: 20060501
  Serious: Yes (Hospitalization)
  Sender: FDA-Public Use
  Company Number: 2005P1000446

PATIENT
  Age: 73 Year
  Sex: Female
  Weight: 65 kg

DRUGS (13)
  1. RETEPLASE (RETEPLASE) [Suspect]
     Indication: ACUTE MYOCARDIAL INFARCTION
     Dosage: IV
     Route: 042
     Dates: start: 20050909, end: 20050909
  2. ABCIXIMAB (ABCIXIMAB) [Suspect]
     Dosage: IV
     Route: 042
     Dates: start: 20050915
  3. AMLOPIDINE [Concomitant]
  4. METFORMIN [Concomitant]
  5. GLIPIZIDE [Concomitant]
  6. ISOSORBIDE MONONITRATE [Concomitant]
  7. BISOPROLOL [Concomitant]
  8. ENALAPRIL MALEATE [Concomitant]
  9. ASPIRIN [Concomitant]
  10. CLOPIDOGREL BISULFATE [Concomitant]
  11. SIMVASTATIN [Concomitant]
  12. GLIMEPIRIDE [Concomitant]
  13. RANITIDINE HYDROCHLORIDE [Concomitant]

REACTIONS (8)
  - ACUTE PSYCHOSIS [None]
  - ANGINA UNSTABLE [None]
  - GASTROINTESTINAL HAEMORRHAGE [None]
  - HAEMATOCRIT DECREASED [None]
  - HAEMOGLOBIN DECREASED [None]
  - INTERNATIONAL NORMALISED RATIO INCREASED [None]
  - ISCHAEMIA [None]
  - POST PROCEDURAL COMPLICATION [None]
